FAERS Safety Report 4985822-0 (Version None)
Quarter: 2006Q2

REPORT INFORMATION
  Report Type: 
  Country: None (occurrence: None)
  Receive Date: 20060421
  Receipt Date: 20060412
  Transmission Date: 20061013
  Serious: Yes (Disabling)
  Sender: FDA-Public Use
  Company Number: 2006042657

PATIENT
  Age: 30 Year
  Sex: Female
  Weight: 80 kg

DRUGS (3)
  1. LYRICA [Suspect]
     Indication: EPILEPSY
     Dosage: 300 MG (150 MG, 2 IN 1 D), ORAL
     Route: 048
     Dates: start: 20060214, end: 20060313
  2. FRISIUM (CLOBAZAM) [Concomitant]
  3. VALPROIC ACID [Concomitant]

REACTIONS (4)
  - ALOPECIA [None]
  - APATHY [None]
  - LETHARGY [None]
  - SOMNOLENCE [None]
